FAERS Safety Report 7743487-9 (Version None)
Quarter: 2011Q3

REPORT INFORMATION
  Report Type: 
  Country: None (occurrence: None)
  Receive Date: 20110912
  Receipt Date: 20110413
  Transmission Date: 20111222
  Serious: No
  Sender: FDA-Public Use
  Company Number: US-ABBOTT-11P-163-0719565-00

PATIENT
  Sex: Female
  Weight: 49.94 kg

DRUGS (2)
  1. MANY UNKNOWN MEDICATIONS [Concomitant]
     Indication: PRODUCT USED FOR UNKNOWN INDICATION
  2. DEPAKOTE [Suspect]
     Indication: DEMENTIA
     Dates: start: 20110101

REACTIONS (1)
  - ALOPECIA [None]
